FAERS Safety Report 9625539 (Version 2)
Quarter: 2013Q4

REPORT INFORMATION
  Report Type: Spontaneous
  Country: AR (occurrence: AR)
  Receive Date: 20131016
  Receipt Date: 20131119
  Transmission Date: 20140711
  Serious: Yes (Other)
  Sender: FDA-Public Use
  Company Number: PHHY2013AR114898

PATIENT
  Age: 71 Year
  Sex: Male

DRUGS (6)
  1. ONBREZ [Suspect]
     Indication: CHRONIC OBSTRUCTIVE PULMONARY DISEASE
     Dosage: 150 UG, QD
     Dates: start: 20130916
  2. SERETIDE [Concomitant]
  3. SPIRIVA [Concomitant]
  4. LOSARTAN [Concomitant]
     Dosage: 50 MG, UNK
  5. CONCOR [Concomitant]
     Dosage: 2.5 MG, UNK
  6. TAURAL [Concomitant]

REACTIONS (3)
  - Swollen tongue [Recovered/Resolved]
  - Tongue pruritus [Recovered/Resolved]
  - Muscle spasms [Recovered/Resolved]
